FAERS Safety Report 4985329-0 (Version None)
Quarter: 2006Q2

REPORT INFORMATION
  Report Type: 
  Country: None (occurrence: None)
  Receive Date: 20060427
  Receipt Date: 20050928
  Transmission Date: 20061013
  Serious: Yes (Hospitalization, Disabling, Other)
  Sender: FDA-Public Use
  Company Number: US-MERCK-0509USA04446

PATIENT
  Age: 40 Year
  Sex: Male
  Weight: 118 kg

DRUGS (21)
  1. VIOXX [Suspect]
     Indication: INFLAMMATION
     Route: 048
     Dates: start: 19991001, end: 20040101
  2. VIOXX [Suspect]
     Indication: SPONDYLITIS
     Route: 048
     Dates: start: 19991001, end: 20040101
  3. XANAX [Concomitant]
     Route: 065
  4. ECOTRIN [Concomitant]
     Route: 065
  5. PLAVIX [Concomitant]
     Route: 065
  6. CYANOCOBALAMIN [Concomitant]
     Route: 065
  7. FOLIC ACID [Concomitant]
     Route: 065
  8. RAMIPRIL [Concomitant]
     Route: 065
  9. LOPRESSOR [Concomitant]
     Route: 065
  10. PAXIL [Concomitant]
     Route: 065
  11. TOPIRAMATE [Concomitant]
     Route: 065
  12. LOPID [Concomitant]
     Route: 065
  13. BUMEX [Concomitant]
     Route: 065
  14. PREVACID [Concomitant]
     Route: 065
  15. ZOCOR [Concomitant]
     Route: 065
  16. LASIX [Concomitant]
     Route: 065
  17. ZOLOFT [Concomitant]
     Route: 065
  18. METHOCARBAMOL [Concomitant]
     Route: 065
  19. TOPROL-XL [Concomitant]
     Route: 065
  20. TRIMIPRAMINE [Concomitant]
     Route: 065
  21. [THERAPY UNSPECIFIED] [Concomitant]
     Route: 065

REACTIONS (15)
  - ATRIOVENTRICULAR BLOCK [None]
  - CARDIAC DISORDER [None]
  - CARDIAC FAILURE CONGESTIVE [None]
  - CARDIOVASCULAR DISORDER [None]
  - CEREBROVASCULAR ACCIDENT [None]
  - CHEST PAIN [None]
  - CORONARY ARTERY DISEASE [None]
  - CORONARY ARTERY OCCLUSION [None]
  - DIZZINESS [None]
  - GASTROOESOPHAGEAL REFLUX DISEASE [None]
  - HYPERTENSION [None]
  - LOSS OF CONSCIOUSNESS [None]
  - MYOCARDIAL INFARCTION [None]
  - PNEUMOCONIOSIS [None]
  - TRANSIENT ISCHAEMIC ATTACK [None]
